FAERS Safety Report 9905149 (Version 1)
Quarter: 2014Q1

REPORT INFORMATION
  Report Type: Spontaneous
  Country: US (occurrence: None)
  Receive Date: 20140212
  Receipt Date: 20140212
  Transmission Date: 20141002
  Serious: Yes (Other)
  Sender: FDA-Public Use
  Company Number: None

PATIENT
  Age: 64 Year
  Sex: Female
  Weight: 38.56 kg

DRUGS (2)
  1. ODANSETRON [Suspect]
     Indication: NAUSEA
     Dosage: 8MG 60 PILLS PRN BY MOUTH
     Route: 048
     Dates: start: 20110101
  2. ODANSETRON [Suspect]
     Indication: RENAL FAILURE CHRONIC
     Dosage: 8MG 60 PILLS PRN BY MOUTH
     Route: 048
     Dates: start: 20110101

REACTIONS (3)
  - Product substitution issue [None]
  - Product quality issue [None]
  - Drug ineffective [None]
